FAERS Safety Report 12412116 (Version 2)
Quarter: 2016Q2

REPORT INFORMATION
  Report Type: Spontaneous
  Country: US (occurrence: US)
  Receive Date: 20160527
  Receipt Date: 20160601
  Transmission Date: 20160815
  Serious: Yes (Hospitalization)
  Sender: FDA-Public Use
  Company Number: US-PFIZER INC-2015386379

PATIENT
  Age: 56 Year
  Sex: Male
  Weight: 108.84 kg

DRUGS (1)
  1. REVATIO [Suspect]
     Active Substance: SILDENAFIL CITRATE
     Indication: PULMONARY HYPERTENSION
     Dosage: 20 MG, 3X/DAY (TAKE DOSES AT LEAST 6 HOURS APART TABLET)
     Route: 048
     Dates: start: 2008

REACTIONS (1)
  - Renal failure [Recovered/Resolved]
